FAERS Safety Report 25640416 (Version 1)
Quarter: 2025Q3

REPORT INFORMATION
  Report Type: Spontaneous
  Country: US (occurrence: US)
  Receive Date: 20250804
  Receipt Date: 20250804
  Transmission Date: 20251021
  Serious: No
  Sender: CSL BEHRING
  Company Number: US-BEH-2025214430

PATIENT
  Age: 53 Year
  Sex: Male

DRUGS (1)
  1. PRIVIGEN [Suspect]
     Active Substance: HUMAN IMMUNOGLOBULIN G
     Dosage: 60 G, QMT (EVERY 4 WEEKS)
     Route: 065
     Dates: start: 20250723

REACTIONS (3)
  - Rash [Unknown]
  - Urticaria [Unknown]
  - Product storage error [Unknown]
